FAERS Safety Report 14283381 (Version 4)
Quarter: 2025Q4

REPORT INFORMATION
  Report Type: Report from Study
  Country: US (occurrence: US)
  Receive Date: 20171213
  Receipt Date: 20251121
  Transmission Date: 20260117
  Serious: Yes (Hospitalization)
  Sender: ABBVIE
  Company Number: US-ABBVIE-17P-163-2192672-00

PATIENT
  Age: 12 Year
  Sex: Female

DRUGS (19)
  1. HUMIRA [Suspect]
     Active Substance: ADALIMUMAB
     Indication: Crohn^s disease
     Route: 058
     Dates: start: 20151002, end: 20160612
  2. HUMIRA [Suspect]
     Active Substance: ADALIMUMAB
     Route: 058
     Dates: start: 20161215, end: 20171012
  3. HUMIRA [Suspect]
     Active Substance: ADALIMUMAB
     Route: 058
     Dates: start: 20181220, end: 20190619
  4. HUMIRA [Suspect]
     Active Substance: ADALIMUMAB
     Dosage: ONCE LOADING DOSE
     Route: 058
     Dates: start: 20181122, end: 20181122
  5. HUMIRA [Suspect]
     Active Substance: ADALIMUMAB
     Dosage: ONCE LOADING DOSE
     Route: 058
     Dates: start: 20181206, end: 20181206
  6. HUMIRA [Suspect]
     Active Substance: ADALIMUMAB
     Route: 058
     Dates: start: 20190619, end: 20200519
  7. HUMIRA [Suspect]
     Active Substance: ADALIMUMAB
     Route: 058
     Dates: start: 20200806
  8. HUMIRA [Suspect]
     Active Substance: ADALIMUMAB
     Route: 058
     Dates: start: 20160613, end: 20161215
  9. CALCIUM/VITAMIN D COMBO [Concomitant]
     Indication: Vitamin supplementation
     Dosage: CALCIUM
     Route: 048
     Dates: start: 20151230
  10. CALCIUM/VITAMIN D COMBO [Concomitant]
     Indication: Vitamin supplementation
     Dosage: VITAMIN D
     Route: 048
  11. IRON\VITAMINS [Concomitant]
     Active Substance: IRON\VITAMINS
     Indication: Vitamin supplementation
     Route: 048
     Dates: start: 20151230
  12. FLAGYL [Concomitant]
     Active Substance: METRONIDAZOLE\METRONIDAZOLE HYDROCHLORIDE
     Indication: Crohn^s disease
     Route: 048
     Dates: start: 20161103, end: 20161215
  13. FLAGYL [Concomitant]
     Active Substance: METRONIDAZOLE\METRONIDAZOLE HYDROCHLORIDE
     Indication: Crohn^s disease
     Route: 048
     Dates: start: 20170526, end: 20170621
  14. PROBIOTICS NOS [Concomitant]
     Active Substance: PROBIOTICS NOS
     Indication: Prophylaxis against diarrhoea
     Route: 048
     Dates: start: 20161103
  15. ORAPRED [Concomitant]
     Active Substance: PREDNISOLONE SODIUM PHOSPHATE
     Indication: Crohn^s disease
     Route: 048
     Dates: start: 20161206, end: 20161215
  16. K PHOS NEUTRAL [Concomitant]
     Active Substance: POTASSIUM PHOSPHATE, MONOBASIC\SODIUM PHOSPHATE, DIBASIC, ANHYDROUS\SODIUM PHOSPHATE, MONOBASIC, MON
     Indication: Malnutrition
     Dosage: 1 PACKER
     Route: 048
     Dates: start: 20161206, end: 20161216
  17. PREVACID [Concomitant]
     Active Substance: LANSOPRAZOLE
     Indication: Prophylaxis
     Route: 048
     Dates: start: 20161206, end: 20161215
  18. PRILOSEC [Concomitant]
     Active Substance: OMEPRAZOLE MAGNESIUM
     Indication: Gastrointestinal disorder
     Route: 048
     Dates: start: 20170119
  19. ZOFRAN [Concomitant]
     Active Substance: ONDANSETRON HYDROCHLORIDE
     Indication: Nausea
     Route: 048
     Dates: start: 20170119

REACTIONS (4)
  - Malnutrition [Recovered/Resolved]
  - Clostridium difficile infection [Recovered/Resolved]
  - Anaemia of chronic disease [Recovered/Resolved]
  - Adjustment disorder with mixed anxiety and depressed mood [Recovered/Resolved]

NARRATIVE: CASE EVENT DATE: 20170923
